FAERS Safety Report 9608580 (Version 1)
Quarter: 2013Q4

REPORT INFORMATION
  Report Type: Spontaneous
  Country: US (occurrence: US)
  Receive Date: 20131009
  Receipt Date: 20131009
  Transmission Date: 20140711
  Serious: Yes (Other)
  Sender: FDA-Public Use
  Company Number: US-ELI_LILLY_AND_COMPANY-US201310000379

PATIENT
  Sex: Female

DRUGS (2)
  1. CYMBALTA [Suspect]
     Indication: DEPRESSION
     Dosage: 120 MG, EACH MORNING
     Route: 065
     Dates: start: 2005
  2. CYMBALTA [Suspect]
     Indication: BACK PAIN

REACTIONS (6)
  - Tympanic membrane perforation [Unknown]
  - Crying [Unknown]
  - Mental impairment [Unknown]
  - Tremor [Unknown]
  - Decreased appetite [Unknown]
  - Drug withdrawal syndrome [Unknown]
